FAERS Safety Report 5745133-2 (Version None)
Quarter: 2008Q2

REPORT INFORMATION
  Report Type: 
  Country: None (occurrence: None)
  Receive Date: 20080521
  Receipt Date: 20080516
  Transmission Date: 20081010
  Serious: Yes (Hospitalization)
  Sender: FDA-Public Use
  Company Number: DE-AVENTIS-200811082DE

PATIENT
  Age: 59 Year
  Sex: Female
  Weight: 75 kg

DRUGS (14)
  1. TELFAST                            /01314201/ [Suspect]
     Route: 048
     Dates: start: 20071027, end: 20071029
  2. ATARAX [Suspect]
     Route: 048
     Dates: start: 20071027, end: 20071029
  3. RANITIDINE HCL [Suspect]
     Route: 048
     Dates: start: 20071027, end: 20071029
  4. ENBREL [Suspect]
     Route: 058
     Dates: start: 20070218, end: 20071028
  5. ISOZID COMP [Suspect]
     Indication: PSORIASIS
     Dates: start: 20070118, end: 20071030
  6. ISOZID COMP [Suspect]
     Dates: start: 20070118, end: 20071030
  7. ENALAPRIL MALEATE [Concomitant]
     Dosage: DOSE: 2.5-0-0
     Dates: start: 20060201
  8. ANALGESICS [Concomitant]
     Dosage: DOSE: 1-0-0
     Dates: start: 20071008, end: 20071008
  9. ASPIRIN [Concomitant]
     Dates: start: 19980101, end: 20071030
  10. THEOPHYLLINE [Concomitant]
     Dosage: DOSE: 1-1-1
     Dates: start: 19860101, end: 20040101
  11. AMINOPHYLLIN [Concomitant]
     Dosage: DOSE: 1-0-0
     Dates: start: 19860101, end: 20030101
  12. SIMVASTATIN [Concomitant]
     Dates: start: 20020101, end: 20071030
  13. MTX                                /00113801/ [Concomitant]
     Dates: start: 20060801, end: 20070101
  14. DECORTIN H [Concomitant]
     Dosage: DOSE: 50 + 20
     Dates: start: 20071027, end: 20071029

REACTIONS (1)
  - LIVER FUNCTION TEST ABNORMAL [None]
